FAERS Safety Report 9468462 (Version 1)
Quarter: 2013Q3

REPORT INFORMATION
  Report Type: Spontaneous
  Country: GB (occurrence: GB)
  Receive Date: 20130821
  Receipt Date: 20130821
  Transmission Date: 20140515
  Serious: Yes (Other)
  Sender: FDA-Public Use
  Company Number: GB-GLAXOSMITHKLINE-B0915379A

PATIENT
  Age: 37 Year
  Sex: Female
  Weight: 58.96 kg

DRUGS (2)
  1. NIQUITIN [Suspect]
     Indication: SMOKING CESSATION THERAPY
     Route: 048
     Dates: start: 20130614, end: 20130802
  2. SMOKELESS CIGARETTE [Concomitant]

REACTIONS (1)
  - Gingival bleeding [Not Recovered/Not Resolved]
